FAERS Safety Report 8531283-4 (Version None)
Quarter: 2012Q3

REPORT INFORMATION
  Report Type: 
  Country: None (occurrence: None)
  Receive Date: 20120723
  Receipt Date: 20120717
  Transmission Date: 20120928
  Serious: No
  Sender: FDA-Public Use
  Company Number: US-PFIZER INC-2012173694

PATIENT
  Sex: Male

DRUGS (4)
  1. LYRICA [Suspect]
     Dosage: 50 MG, UNK
     Dates: start: 20120101, end: 20120101
  2. LYRICA [Suspect]
     Dosage: 75 MG, UNK
     Dates: start: 20120701
  3. MELOXICAM [Concomitant]
     Indication: SCIATICA
     Dosage: UNK
     Dates: start: 20120701, end: 20120716
  4. LYRICA [Suspect]
     Indication: SCIATICA
     Dosage: 75 MG, UNK
     Dates: start: 20120401

REACTIONS (2)
  - SCIATICA [None]
  - DRUG ADMINISTRATION ERROR [None]
